FAERS Safety Report 8396936-X (Version None)
Quarter: 2012Q2

REPORT INFORMATION
  Report Type: 
  Country: None (occurrence: None)
  Receive Date: 20120530
  Receipt Date: 20120521
  Transmission Date: 20120825
  Serious: Yes (Hospitalization)
  Sender: FDA-Public Use
  Company Number: US-ABBOTT-12P-163-0939277-00

PATIENT
  Age: 74 Year
  Sex: Male

DRUGS (4)
  1. LEUKINE [Suspect]
     Indication: MALIGNANT MELANOMA
     Dosage: DAILY
     Route: 058
     Dates: start: 20110516, end: 20110522
  2. NAPCILLIN SODIUM [Suspect]
     Indication: PRODUCT USED FOR UNKNOWN INDICATION
  3. VICODIN [Suspect]
     Indication: PRODUCT USED FOR UNKNOWN INDICATION
  4. IPILIMUMAB [Suspect]
     Indication: MALIGNANT MELANOMA
     Dosage: DAILY
     Route: 042
     Dates: start: 20110516, end: 20110516

REACTIONS (8)
  - PYREXIA [None]
  - BACTERIAL SEPSIS [None]
  - STAPHYLOCOCCAL INFECTION [None]
  - LYMPHOCYTE COUNT DECREASED [None]
  - CHILLS [None]
  - ALANINE AMINOTRANSFERASE INCREASED [None]
  - WHITE BLOOD CELL COUNT INCREASED [None]
  - LIVER FUNCTION TEST ABNORMAL [None]
